FAERS Safety Report 20935423 (Version 8)
Quarter: 2022Q4

REPORT INFORMATION
  Report Type: Spontaneous
  Country: US (occurrence: US)
  Receive Date: 20220609
  Receipt Date: 20221001
  Transmission Date: 20230113
  Serious: Yes (Hospitalization, Other)
  Sender: FDA-Public Use
  Company Number: US-UNITED THERAPEUTICS-UNT-2022-012127

PATIENT
  Sex: Male
  Weight: 104.31 kg

DRUGS (5)
  1. REMODULIN [Suspect]
     Active Substance: TREPROSTINIL
     Indication: Pulmonary arterial hypertension
     Dosage: UNK, CONTINUING
     Route: 058
     Dates: start: 20211013
  2. REMODULIN [Suspect]
     Active Substance: TREPROSTINIL
     Dosage: 0.030 ?G/KG (PRE-FILLED WITH 2.8 ML PER CASSETTE AT A PUMP RATE OF 30 MCL/HR), CONTINUING
     Route: 058
  3. REMODULIN [Suspect]
     Active Substance: TREPROSTINIL
     Dosage: UNK, CONTINUING
     Route: 058
  4. REMODULIN [Suspect]
     Active Substance: TREPROSTINIL
     Dosage: UNK UNK, CONTINUING (PRE-FILLED WITH 3 ML PER CASSETTE AT A PUMP RATE OF 30 MCL/HR)
     Route: 058
  5. SILDENAFIL [Concomitant]
     Active Substance: SILDENAFIL
     Indication: Product used for unknown indication
     Dosage: UNK
     Route: 065

REACTIONS (8)
  - Hip fracture [Recovering/Resolving]
  - Fall [Recovered/Resolved with Sequelae]
  - Lower limb fracture [Recovering/Resolving]
  - Decreased appetite [Recovering/Resolving]
  - Arthralgia [Unknown]
  - Arthritis [Unknown]
  - Bone disorder [Unknown]
  - Myositis [Unknown]

NARRATIVE: CASE EVENT DATE: 20220101
